FAERS Safety Report 5928285-0 (Version None)
Quarter: 2008Q4

REPORT INFORMATION
  Report Type: 
  Country: None (occurrence: None)
  Receive Date: 20081022
  Receipt Date: 20081022
  Transmission Date: 20090506
  Serious: Yes (Life-Threatening, Hospitalization)
  Sender: FDA-Public Use
  Company Number: None

PATIENT
  Age: 68 Year
  Sex: Male
  Weight: 86.2 kg

DRUGS (6)
  1. AMIODARONE HCL [Suspect]
     Indication: ATRIAL FIBRILLATION
     Dosage: 200MG  DAILY PO
     Route: 048
  2. LEVOFLOXACIN [Concomitant]
  3. WARFARIN SODIUM [Concomitant]
  4. ENALAPRIL MALEATE [Concomitant]
  5. GLYBURIDE AND METFORMIN HCL [Concomitant]
  6. DIGOXIIN [Concomitant]

REACTIONS (2)
  - DRUG TOXICITY [None]
  - LOBAR PNEUMONIA [None]
